FAERS Safety Report 8044105-5 (Version None)
Quarter: 2012Q1

REPORT INFORMATION
  Report Type: 
  Country: None (occurrence: None)
  Receive Date: 20120113
  Receipt Date: 20111219
  Transmission Date: 20120608
  Serious: No
  Sender: FDA-Public Use
  Company Number: US-ROXANE LABORATORIES, INC.-2011-RO-01839RO

PATIENT
  Sex: Female

DRUGS (1)
  1. CODEINE SULFATE [Suspect]

REACTIONS (1)
  - INFLUENZA LIKE ILLNESS [None]
